FAERS Safety Report 19390072 (Version 1)
Quarter: 2021Q2

REPORT INFORMATION
  Report Type: Report from Study
  Country: BE (occurrence: BE)
  Receive Date: 20210608
  Receipt Date: 20210608
  Transmission Date: 20210717
  Serious: Yes (Hospitalization, Other)
  Sender: FDA-Public Use
  Company Number: BE-PFIZER INC-2021590509

PATIENT
  Age: 73 Year
  Sex: Male

DRUGS (5)
  1. NIVOLUMAB [Suspect]
     Active Substance: NIVOLUMAB
     Dosage: Q3WK (ONCE EVERY 3 WEEKS)
     Route: 065
     Dates: start: 20210219
  2. MEDROL [Suspect]
     Active Substance: METHYLPREDNISOLONE
     Indication: SKIN BURNING SENSATION
     Dosage: 32 MG, DAILY THIS WEEK, THEN DECREASE TO 16 MG DAILY FOR 7 DAYS, THEN TO 8 MG FOR NEXT 7 DAYS.
     Route: 042
  3. NIVOLUMAB [Suspect]
     Active Substance: NIVOLUMAB
     Indication: MALIGNANT MELANOMA
     Dosage: ONCE EVERY 2 WEEKS
     Route: 065
     Dates: start: 20210219
  4. MEDROL [Suspect]
     Active Substance: METHYLPREDNISOLONE
     Dosage: 8 MG, 1X/DAY
     Route: 065
  5. IPILIMUMAB [Suspect]
     Active Substance: IPILIMUMAB
     Indication: MALIGNANT MELANOMA
     Dosage: EVERY 3 WEEKS
     Route: 065
     Dates: start: 20210219

REACTIONS (4)
  - Skin burning sensation [Unknown]
  - Skin lesion [Recovering/Resolving]
  - Rash macular [Recovering/Resolving]
  - Intraocular pressure increased [Unknown]

NARRATIVE: CASE EVENT DATE: 20210322
